FAERS Safety Report 6725617-0 (Version None)
Quarter: 2010Q2

REPORT INFORMATION
  Report Type: 
  Country: None (occurrence: None)
  Receive Date: 20100514
  Receipt Date: 20100507
  Transmission Date: 20101027
  Serious: Yes (Hospitalization, Other)
  Sender: FDA-Public Use
  Company Number: US-JNJFOC-20090400368

PATIENT
  Age: 51 Year
  Sex: Female
  Weight: 56.7 kg

DRUGS (6)
  1. LEVAQUIN [Suspect]
     Indication: DRUG USE FOR UNKNOWN INDICATION
     Route: 065
  2. PREMARIN [Concomitant]
     Route: 065
  3. PERCOCET [Concomitant]
     Indication: PAIN
     Route: 065
  4. IBUPROFEN [Concomitant]
     Indication: PAIN
     Route: 065
  5. MEDROL [Concomitant]
     Route: 065
  6. PREDNISONE [Concomitant]
     Route: 065

REACTIONS (2)
  - MYELOID LEUKAEMIA [None]
  - NEUROPATHY PERIPHERAL [None]
